FAERS Safety Report 8582580-8 (Version None)
Quarter: 2012Q3

REPORT INFORMATION
  Report Type: 
  Country: None (occurrence: None)
  Receive Date: 20120809
  Receipt Date: 20120731
  Transmission Date: 20120928
  Serious: Yes (Hospitalization)
  Sender: FDA-Public Use
  Company Number: US-ASTRAZENECA-2012SE54204

PATIENT
  Age: 66 Year
  Sex: Male
  Weight: 83 kg

DRUGS (9)
  1. LIPITOR [Concomitant]
     Indication: HYPERCHOLESTEROLAEMIA
     Dates: start: 20030101
  2. ACTOPLUS MET [Concomitant]
     Indication: DIABETES MELLITUS
     Dosage: 15/850 MG TWO TIME PER DAY
     Route: 048
     Dates: start: 20120205
  3. ASTEPRO [Concomitant]
     Indication: SINUS CONGESTION
     Dates: start: 20120409
  4. VEGF TRAP-EYE/ LASER [Suspect]
     Indication: DIABETIC RETINAL OEDEMA
     Route: 065
     Dates: start: 20111031
  5. OMEPRAZOLE [Concomitant]
     Indication: GASTROOESOPHAGEAL REFLUX DISEASE
     Route: 048
     Dates: start: 20120323
  6. ZESTORETIC [Suspect]
     Indication: HYPERTENSION
     Dosage: 20+12.5 MG TWO TIMES PER DAY
     Route: 048
     Dates: start: 20120205
  7. LANTUS [Concomitant]
     Indication: TYPE 2 DIABETES MELLITUS
     Route: 030
     Dates: start: 20100907
  8. AMLODIPINE [Concomitant]
     Indication: HYPERTENSION
     Route: 048
     Dates: start: 20120205
  9. FLUTICASONE PROPIONATE [Concomitant]
     Indication: SINUS CONGESTION
     Dosage: 50 MCG DAILY
     Route: 045
     Dates: start: 20120312

REACTIONS (2)
  - HYPONATRAEMIA [None]
  - HICCUPS [None]
